FAERS Safety Report 13764794 (Version 1)
Quarter: 2017Q3

REPORT INFORMATION
  Report Type: Report from Study
  Country: DE (occurrence: DE)
  Receive Date: 20170718
  Receipt Date: 20170718
  Transmission Date: 20171127
  Serious: Yes (Other)
  Sender: FDA-Public Use
  Company Number: DE-BAYER-2017-130869

PATIENT
  Age: 47 Year
  Sex: Female

DRUGS (1)
  1. BETAFERON [Suspect]
     Active Substance: INTERFERON BETA-1B
     Indication: MULTIPLE SCLEROSIS
     Dosage: 250 ?G, QOD
     Route: 058
     Dates: start: 20160115

REACTIONS (3)
  - Multiple sclerosis [Unknown]
  - Paraesthesia [Not Recovered/Not Resolved]
  - Paraesthesia [None]

NARRATIVE: CASE EVENT DATE: 20170615
